FAERS Safety Report 6880311-0 (Version None)
Quarter: 2010Q3

REPORT INFORMATION
  Report Type: 
  Country: None (occurrence: None)
  Receive Date: 20100728
  Receipt Date: 20100718
  Transmission Date: 20110219
  Serious: Yes (Other)
  Sender: FDA-Public Use
  Company Number: US-SANOFI-AVENTIS-2009SA008454

PATIENT
  Age: 66 Year
  Sex: Female

DRUGS (6)
  1. LANTUS [Suspect]
     Dosage: DOSE:30 UNIT(S)
     Route: 058
     Dates: start: 20040101
  2. LANTUS [Suspect]
     Dosage: DOSE:40 UNIT(S)
     Route: 058
  3. OPTICLICK [Suspect]
     Dates: start: 20040101
  4. OPTICLICK [Suspect]
  5. TEGRETOL [Suspect]
     Route: 065
  6. METFORMIN HCL [Suspect]
     Route: 065

REACTIONS (5)
  - CEREBROVASCULAR ACCIDENT [None]
  - CONVULSION [None]
  - HEADACHE [None]
  - RENAL FUNCTION TEST ABNORMAL [None]
  - VISION BLURRED [None]
